FAERS Safety Report 20058344 (Version 1)
Quarter: 2021Q4

REPORT INFORMATION
  Report Type: Spontaneous
  Country: US (occurrence: US)
  Receive Date: 20211111
  Receipt Date: 20211111
  Transmission Date: 20220303
  Serious: No
  Sender: FDA-Public Use
  Company Number: US-PFIZER INC-202101357734

PATIENT
  Age: 76 Year
  Sex: Female
  Weight: 68.04 kg

DRUGS (1)
  1. XELJANZ [Suspect]
     Active Substance: TOFACITINIB CITRATE
     Dosage: UNK, 1X/DAY

REACTIONS (12)
  - Blister [Unknown]
  - Skin lesion [Unknown]
  - Dyspnoea [Unknown]
  - Palpitations [Unknown]
  - Myalgia [Unknown]
  - Abdominal discomfort [Unknown]
  - Dizziness [Unknown]
  - Cough [Unknown]
  - Fatigue [Unknown]
  - Burning sensation [Unknown]
  - Hypersensitivity [Unknown]
  - Condition aggravated [Unknown]
